APPROVED DRUG PRODUCT: DIPYRIDAMOLE
Active Ingredient: DIPYRIDAMOLE
Strength: 25MG
Dosage Form/Route: TABLET;ORAL
Application: A087184 | Product #001 | TE Code: AB
Applicant: BARR LABORATORIES INC
Approved: Oct 3, 1990 | RLD: No | RS: No | Type: RX